FAERS Safety Report 9095937 (Version 1)
Quarter: 2013Q1

REPORT INFORMATION
  Report Type: Other
  Country: JP (occurrence: JP)
  Receive Date: 20130219
  Receipt Date: 20130219
  Transmission Date: 20140127
  Serious: Yes (Other)
  Sender: FDA-Public Use
  Company Number: JP-ACTELION-A-CH2013-79103

PATIENT
  Age: 4 Month
  Sex: Female

DRUGS (4)
  1. TRACLEER [Suspect]
     Indication: PULMONARY ARTERIAL HYPERTENSION
     Dosage: UNK
     Route: 048
  2. NITRIC OXIDE [Concomitant]
  3. SILDENAFIL [Concomitant]
  4. PROSTACYCLIN [Concomitant]

REACTIONS (1)
  - Pulmonary congestion [Unknown]
